FAERS Safety Report 5783204-5 (Version None)
Quarter: 2008Q2

REPORT INFORMATION
  Report Type: 
  Country: None (occurrence: None)
  Receive Date: 20080619
  Receipt Date: 20080619
  Transmission Date: 20081010
  Serious: Yes (Hospitalization)
  Sender: FDA-Public Use
  Company Number: None

PATIENT
  Age: 41 Year

DRUGS (1)
  1. LYRICA [Suspect]
     Indication: EXOSTOSIS
     Dosage: 50MG QHS 1 DOSE

REACTIONS (7)
  - ABNORMAL BEHAVIOUR [None]
  - BALANCE DISORDER [None]
  - CONFUSIONAL STATE [None]
  - LEUKOCYTOSIS [None]
  - PSYCHOMOTOR HYPERACTIVITY [None]
  - TIC [None]
  - UNRESPONSIVE TO STIMULI [None]
